FAERS Safety Report 8332326-3 (Version None)
Quarter: 2012Q2

REPORT INFORMATION
  Report Type: 
  Country: None (occurrence: None)
  Receive Date: 20120503
  Receipt Date: 20120104
  Transmission Date: 20120825
  Serious: Yes (Other)
  Sender: FDA-Public Use
  Company Number: US-BAYER-2011-080526

PATIENT
  Age: 48 Year
  Sex: Female

DRUGS (2)
  1. YAZ [Suspect]
     Dosage: UNK
     Dates: start: 20081001, end: 20090901
  2. YASMIN [Suspect]
     Dosage: UNK
     Dates: start: 20081001, end: 20090901

REACTIONS (7)
  - PAIN [None]
  - PSYCHOLOGICAL TRAUMA [None]
  - PULMONARY EMBOLISM [None]
  - EMOTIONAL DISTRESS [None]
  - ANXIETY [None]
  - FEAR [None]
  - INJURY [None]
